FAERS Safety Report 5748786-8 (Version None)
Quarter: 2008Q2

REPORT INFORMATION
  Report Type: 
  Country: None (occurrence: None)
  Receive Date: 20080521
  Receipt Date: 20080509
  Transmission Date: 20081010
  Serious: Yes (Hospitalization)
  Sender: FDA-Public Use
  Company Number: 2008-01660

PATIENT
  Age: 80 Year
  Sex: Male

DRUGS (9)
  1. VELCADE [Suspect]
     Indication: MULTIPLE MYELOMA
     Dosage: 2.4 MG, INTRAVENOUS
     Route: 042
     Dates: start: 20080103, end: 20080114
  2. ARANESP [Concomitant]
  3. CALCIUM SANDOZ FORTE D (COLECALCIFEROL, CALCIUM GLUCEPTATE, CALCIUM CA [Concomitant]
  4. NEURONTIN [Concomitant]
  5. CASODEX [Concomitant]
  6. COZAAR PLUS (HYDROCHLOROTHIAZIDE, LOSARTAN POTASSIUM) [Concomitant]
  7. ALLOPURINOL [Concomitant]
  8. OMEPRAZOLE [Concomitant]
  9. FORTECORTIN [Concomitant]

REACTIONS (4)
  - DIARRHOEA [None]
  - HEAD INJURY [None]
  - HYPOTENSION [None]
  - LOSS OF CONSCIOUSNESS [None]
